FAERS Safety Report 10312048 (Version 2)
Quarter: 2014Q3

REPORT INFORMATION
  Report Type: Report from Study
  Country: US (occurrence: US)
  Receive Date: 20140717
  Receipt Date: 20140717
  Transmission Date: 20150326
  Serious: Yes (Other)
  Sender: FDA-Public Use
  Company Number: PHEH2014US010393

PATIENT
  Age: 58 Year
  Sex: Female
  Weight: 55.7 kg

DRUGS (20)
  1. DELTASON [Concomitant]
     Dosage: 1 DF, DAILY
     Route: 048
  2. TACROLIMUS. [Concomitant]
     Active Substance: TACROLIMUS
     Dosage: 4 MG, (1 MG IN THE AM AND 4 MG IN THE PM))
     Route: 048
  3. THYMOGLOBULIN [Concomitant]
     Active Substance: LAPINE T-LYMPHOCYTE IMMUNE GLOBULIN
     Dosage: UNK UKN, UNK
  4. PREDNISONE. [Concomitant]
     Active Substance: PREDNISONE
     Dosage: UNK UKN, UNK
  5. LYCOPENE [Concomitant]
     Active Substance: LYCOPENE
     Dosage: 1 DF, DAILY
     Route: 048
  6. BACTRIM [Concomitant]
     Active Substance: SULFAMETHOXAZOLE\TRIMETHOPRIM
     Dosage: 1 DF, TIW
  7. AMOXIL ^BEECHAM PHARM^ [Concomitant]
     Indication: DENTAL OPERATION
     Dosage: 1000 MG, BY MOUTH 2 GM 1 HOUR
  8. LIPITOR [Concomitant]
     Active Substance: ATORVASTATIN CALCIUM
     Dosage: 1 DF, AT NIGHT
     Route: 048
  9. ASPIRIN EC [Concomitant]
     Active Substance: ASPIRIN
     Dosage: 81 MG, DAILY
     Route: 048
  10. ATIVAN [Concomitant]
     Active Substance: LORAZEPAM
     Dosage: 1 OR ONE AND HALF AT BED TIME
  11. MYFORTIC [Suspect]
     Active Substance: MYCOPHENOLATE SODIUM
     Indication: RENAL TRANSPLANT
  12. VITAMIN D [Concomitant]
     Active Substance: CHOLECALCIFEROL
     Dosage: 50000 MG, QW
  13. ZOFRAN [Concomitant]
     Active Substance: ONDANSETRON HYDROCHLORIDE
     Indication: VOMITING
  14. ERGOCALCIFEROL. [Concomitant]
     Active Substance: ERGOCALCIFEROL
     Dosage: 1 DF, QW FOR 12 WEEKS
     Route: 048
  15. MYFORTIC [Suspect]
     Active Substance: MYCOPHENOLATE SODIUM
     Indication: PROPHYLAXIS AGAINST TRANSPLANT REJECTION
     Dosage: 4 DF, BID
     Route: 048
     Dates: start: 201312
  16. PHOSPHORUS [Concomitant]
     Active Substance: PHOSPHORUS
     Indication: ELECTROLYTE IMBALANCE
     Dosage: 250 MG, TID
  17. ZOFRAN [Concomitant]
     Active Substance: ONDANSETRON HYDROCHLORIDE
     Indication: NAUSEA
     Dosage: 1 DF, EVERY 4 HRS AS NEEDED
  18. NEUTRA-PHOS-K [Concomitant]
     Dosage: 250 MG, TID
     Route: 048
  19. NYSTATIN. [Concomitant]
     Active Substance: NYSTATIN
     Dosage: 5 ML, QID
     Route: 048
  20. NYSTATIN. [Concomitant]
     Active Substance: NYSTATIN
     Dosage: 10 ML, QID
     Route: 048

REACTIONS (17)
  - Intercapillary glomerulosclerosis [Unknown]
  - White blood cell count decreased [Unknown]
  - Blood magnesium decreased [Unknown]
  - Pain in extremity [Unknown]
  - Burning sensation [Unknown]
  - Renal failure chronic [Unknown]
  - Hypertension [Unknown]
  - Blood sodium decreased [Unknown]
  - Neuropathy peripheral [Unknown]
  - Blood triglycerides increased [Unknown]
  - Diarrhoea [Unknown]
  - Tachycardia [Unknown]
  - Anaemia [Unknown]
  - Weight increased [Unknown]
  - Stomatitis [Unknown]
  - Increased appetite [Unknown]
  - Blood glucose increased [Unknown]

NARRATIVE: CASE EVENT DATE: 20140528
